FAERS Safety Report 7304201-4 (Version None)
Quarter: 2011Q1

REPORT INFORMATION
  Report Type: 
  Country: None (occurrence: None)
  Receive Date: 20110221
  Receipt Date: 20110207
  Transmission Date: 20110831
  Serious: Yes (Other)
  Sender: FDA-Public Use
  Company Number: US-BAYER-200942890NA

PATIENT
  Sex: Female
  Weight: 105.67 kg

DRUGS (4)
  1. COUMADIN [Concomitant]
     Indication: PULMONARY EMBOLISM
  2. YASMIN [Suspect]
     Indication: PRODUCT USED FOR UNKNOWN INDICATION
     Dates: start: 20070801, end: 20071116
  3. PREMARIN [Concomitant]
  4. LOVENOX [Concomitant]
     Indication: PULMONARY EMBOLISM

REACTIONS (5)
  - DEEP VEIN THROMBOSIS [None]
  - PULMONARY EMBOLISM [None]
  - PAIN IN EXTREMITY [None]
  - CHEST PAIN [None]
  - DYSPNOEA [None]
